FAERS Safety Report 23043268 (Version 1)
Quarter: 2023Q4

REPORT INFORMATION
  Report Type: Spontaneous
  Country: US (occurrence: US)
  Receive Date: 20231009
  Receipt Date: 20231009
  Transmission Date: 20240109
  Serious: No
  Sender: FDA-Public Use
  Company Number: US-BRISTOL-MYERS SQUIBB COMPANY-2023-140763

PATIENT
  Age: 63 Year
  Sex: Female

DRUGS (3)
  1. ZEPOSIA [Suspect]
     Active Substance: OZANIMOD HYDROCHLORIDE
     Indication: Colitis ulcerative
     Dosage: INITIATE WITH A 7-DAY TITRATION AS FOLLOWS: DAYS 1 TO 4: GIVE 0.23 MG PO ONCE DAILY. DAYS 5 TO 7: GI
  2. ZEPOSIA [Suspect]
     Active Substance: OZANIMOD HYDROCHLORIDE
  3. ZEPOSIA [Suspect]
     Active Substance: OZANIMOD HYDROCHLORIDE

REACTIONS (1)
  - Colitis ulcerative [Unknown]
